FAERS Safety Report 24381255 (Version 1)
Quarter: 2024Q4

REPORT INFORMATION
  Report Type: Spontaneous
  Country: CN (occurrence: CN)
  Receive Date: 20241001
  Receipt Date: 20241001
  Transmission Date: 20250115
  Serious: Yes (Death, Other)
  Sender: RANBAXY
  Company Number: CN-SUN PHARMACEUTICAL INDUSTRIES LTD-2024R1-470395

PATIENT
  Age: 54 Year
  Sex: Male

DRUGS (1)
  1. TEMOZOLOMIDE [Suspect]
     Active Substance: TEMOZOLOMIDE
     Indication: Lung neoplasm malignant
     Dosage: 50 MILLIGRAM/SQ. METER, DAILY DAYS 1?21, EVERY 28 DAYS
     Route: 065

REACTIONS (3)
  - Therapy partial responder [Unknown]
  - Malnutrition [Fatal]
  - Death [Fatal]

NARRATIVE: CASE EVENT DATE: 20171028
